FAERS Safety Report 9155111 (Version 1)
Quarter: 2013Q1

REPORT INFORMATION
  Report Type: Spontaneous
  Country: IT (occurrence: None)
  Receive Date: 20130205
  Receipt Date: 20130205
  Transmission Date: 20140127
  Serious: Yes (Hospitalization)
  Sender: FDA-Public Use
  Company Number: 2013-01743

PATIENT
  Age: 45 Year
  Sex: Female

DRUGS (5)
  1. PACLITAXEL [Suspect]
     Indication: PRODUCT USED FOR UNKNOWN INDICATION
     Route: 042
     Dates: start: 20120726, end: 20120726
  2. CARBOPLATIN [Suspect]
     Indication: PRODUCT USED FOR UNKNOWN INDICATION
     Route: 042
     Dates: start: 20120726, end: 20120726
  3. AVASTIN /00848101/ [Suspect]
     Indication: PRODUCT USED FOR UNKNOWN INDICATION
     Route: 042
     Dates: start: 20120726, end: 20120726
  4. TRIATEC [Concomitant]
  5. BINOCRIT [Concomitant]

REACTIONS (20)
  - Hyperthermia malignant [None]
  - Leukopenia [None]
  - Nausea [None]
  - Azotaemia [None]
  - Activated partial thromboplastin time prolonged [None]
  - Blood chloride decreased [None]
  - Blood bilirubin increased [None]
  - Blood creatine phosphokinase increased [None]
  - Haematocrit decreased [None]
  - Haemoglobin decreased [None]
  - Blood lactate dehydrogenase increased [None]
  - Monocyte count increased [None]
  - Mean cell volume increased [None]
  - Lymphocyte count decreased [None]
  - White blood cell count decreased [None]
  - Neutrophil count increased [None]
  - Red blood cell anisocytes present [None]
  - Blood sodium decreased [None]
  - Red blood cell count decreased [None]
  - Blood glucose increased [None]
